FAERS Safety Report 19436870 (Version 3)
Quarter: 2021Q3

REPORT INFORMATION
  Report Type: Spontaneous
  Country: US (occurrence: US)
  Receive Date: 20210618
  Receipt Date: 20210709
  Transmission Date: 20211014
  Serious: Yes (Disabling, Other)
  Sender: FDA-Public Use
  Company Number: US-009507513-2106USA003699

PATIENT
  Age: 57 Year
  Sex: Male

DRUGS (1)
  1. KEYTRUDA [Suspect]
     Active Substance: PEMBROLIZUMAB
     Indication: OESOPHAGEAL CARCINOMA
     Dosage: DOSE UNKNOWN BY REPORTER, FREQUENCY: EVERY 3 WEEKS
     Route: 042
     Dates: start: 201801, end: 202001

REACTIONS (6)
  - Rheumatoid arthritis [Unknown]
  - Malignant neoplasm progression [Unknown]
  - Disability [Unknown]
  - Asthenia [Unknown]
  - Gastrointestinal tube removal [Unknown]
  - Memory impairment [Unknown]

NARRATIVE: CASE EVENT DATE: 201802
